FAERS Safety Report 7426461-1 (Version None)
Quarter: 2011Q2

REPORT INFORMATION
  Report Type: 
  Country: None (occurrence: None)
  Receive Date: 20110420
  Receipt Date: 20100301
  Transmission Date: 20111010
  Serious: Yes (Other)
  Sender: FDA-Public Use
  Company Number: PHHY2010DE92113

PATIENT
  Sex: Female

DRUGS (1)
  1. EXTAVIA [Suspect]
     Dosage: UNK
     Route: 058
     Dates: start: 20090509

REACTIONS (2)
  - NEURALGIA [None]
  - FATIGUE [None]
